FAERS Safety Report 14242143 (Version 1)
Quarter: 2017Q4

REPORT INFORMATION
  Report Type: Spontaneous
  Country: US (occurrence: US)
  Receive Date: 20171130
  Receipt Date: 20171130
  Transmission Date: 20180321
  Serious: No
  Sender: FDA-Public Use
  Company Number: None

PATIENT
  Sex: Male
  Weight: 81 kg

DRUGS (6)
  1. SUMATRIPTAN TABLETS, USP [Suspect]
     Active Substance: SUMATRIPTAN
     Indication: MIGRAINE
     Dosage: ?          QUANTITY:9 TABLET(S);?
     Route: 048
     Dates: start: 20171112, end: 20171130
  2. DULERA [Concomitant]
     Active Substance: FORMOTEROL FUMARATE DIHYDRATE\MOMETASONE FUROATE
  3. AMITRIPTYLINE [Concomitant]
     Active Substance: AMITRIPTYLINE
  4. VENTOLIN [Concomitant]
     Active Substance: ALBUTEROL SULFATE
  5. IRON PILLS WOMEN^S VITAMINS [Concomitant]
  6. FLONAZE [Concomitant]

REACTIONS (7)
  - Vertigo [None]
  - Dizziness [None]
  - Feeling of body temperature change [None]
  - Nausea [None]
  - Migraine [None]
  - Headache [None]
  - Therapy change [None]

NARRATIVE: CASE EVENT DATE: 20011127
